FAERS Safety Report 5600971-1 (Version None)
Quarter: 2008Q1

REPORT INFORMATION
  Report Type: 
  Country: None (occurrence: None)
  Receive Date: 20080124
  Receipt Date: 20080116
  Transmission Date: 20080703
  Serious: Yes (Hospitalization, Other)
  Sender: FDA-Public Use
  Company Number: PHRM2008FR00639

PATIENT
  Age: 6 Year
  Sex: Male
  Weight: 19 kg

DRUGS (3)
  1. EXJADE [Suspect]
     Indication: IRON OVERLOAD
     Dosage: 125 MG, TID
     Route: 048
     Dates: start: 20071114
  2. ORACILLINE [Concomitant]
     Route: 048
  3. SPECIAFOLDINE [Concomitant]
     Route: 048

REACTIONS (2)
  - TRANSAMINASES INCREASED [None]
  - VENOUS OCCLUSION [None]
